FAERS Safety Report 12550809 (Version 1)
Quarter: 2016Q3

REPORT INFORMATION
  Report Type: Report from Study
  Country: US (occurrence: US)
  Receive Date: 20160712
  Receipt Date: 20160712
  Transmission Date: 20161109
  Serious: Yes (Hospitalization, Other)
  Sender: FDA-Public Use
  Company Number: US-AMGEN-USASL2016056495

PATIENT
  Age: 58 Year
  Sex: Female

DRUGS (1)
  1. KYPROLIS [Suspect]
     Active Substance: CARFILZOMIB
     Indication: PLASMA CELL MYELOMA
     Dosage: UNK
     Route: 065
     Dates: start: 20160223

REACTIONS (5)
  - Myocardial infarction [Unknown]
  - Urinary tract infection [Unknown]
  - Ejection fraction decreased [Recovering/Resolving]
  - Vomiting [Unknown]
  - Adverse reaction [Unknown]

NARRATIVE: CASE EVENT DATE: 2016
